FAERS Safety Report 5939802-9 (Version None)
Quarter: 2008Q4

REPORT INFORMATION
  Report Type: 
  Country: None (occurrence: None)
  Receive Date: 20081031
  Receipt Date: 20081031
  Transmission Date: 20090506
  Serious: Yes (Death, Hospitalization)
  Sender: FDA-Public Use
  Company Number: None

PATIENT
  Sex: Male
  Weight: 88 kg

DRUGS (5)
  1. CYCLOPHOSPHAMIDE [Suspect]
     Dosage: 1600 MG
  2. DOXORUBICIN HYDROCHLORIDE [Suspect]
     Dosage: 105 MG
  3. PREDNISONE TAB [Suspect]
     Dosage: 1000 MG
  4. RITUXIMAB (MOAB C2B8 ANTI CD20 CHIMERIC) [Concomitant]
     Dosage: 800 ,G
  5. VINCRISTINE SULFATE [Suspect]
     Dosage: 2 MG

REACTIONS (7)
  - DIALYSIS [None]
  - GENERAL PHYSICAL HEALTH DETERIORATION [None]
  - HEPATIC FUNCTION ABNORMAL [None]
  - PERITONITIS BACTERIAL [None]
  - RENAL FAILURE [None]
  - RESPIRATORY DISTRESS [None]
  - TACHYCARDIA [None]
